FAERS Safety Report 5453011-1 (Version None)
Quarter: 2007Q3

REPORT INFORMATION
  Report Type: 
  Country: None (occurrence: None)
  Receive Date: 20070914
  Receipt Date: 20070905
  Transmission Date: 20080115
  Serious: No
  Sender: FDA-Public Use
  Company Number: US-BOEHRINGER INGELHEIM PHARMACEUTICALS, INC.-2007-BP-20661BP

PATIENT
  Sex: Male

DRUGS (6)
  1. SPIRIVA [Suspect]
     Indication: CHRONIC OBSTRUCTIVE PULMONARY DISEASE
     Route: 055
     Dates: start: 20060601
  2. SPIRIVA [Suspect]
     Indication: ASTHMA
  3. SPIRIVA [Suspect]
     Indication: BRONCHITIS CHRONIC
  4. SINGULAIR [Concomitant]
     Indication: DYSPNOEA
     Dates: start: 20010906
  5. COMBIVENT [Concomitant]
     Indication: DYSPNOEA
     Dates: start: 20030217
  6. FLOVENT [Concomitant]
     Indication: DYSPNOEA
     Dates: start: 20030217

REACTIONS (1)
  - URINARY RETENTION [None]
